FAERS Safety Report 16436949 (Version 2)
Quarter: 2019Q3

REPORT INFORMATION
  Report Type: Report from Study
  Country: US (occurrence: US)
  Receive Date: 20190614
  Receipt Date: 20190711
  Transmission Date: 20191004
  Serious: Yes (Hospitalization)
  Sender: FDA-Public Use
  Company Number: US-ACTELION-A-NJ2019-191751

PATIENT
  Age: 56 Year
  Sex: Female

DRUGS (10)
  1. OPSUMIT [Suspect]
     Active Substance: MACITENTAN
     Indication: PULMONARY ARTERIAL HYPERTENSION
     Dosage: 10 MG, QD
     Route: 048
     Dates: start: 20190225
  2. BUMETANIDE. [Concomitant]
     Active Substance: BUMETANIDE
  3. SPIRONOLACTONE. [Concomitant]
     Active Substance: SPIRONOLACTONE
  4. MYCOPHENOLATE [Concomitant]
     Active Substance: MYCOPHENOLIC ACID
  5. RIFAXIMIN. [Concomitant]
     Active Substance: RIFAXIMIN
  6. LEVOTHYROXINE. [Concomitant]
     Active Substance: LEVOTHYROXINE
  7. ADVAIR HFA [Concomitant]
     Active Substance: FLUTICASONE PROPIONATE\SALMETEROL XINAFOATE
  8. SILDENAFIL. [Concomitant]
     Active Substance: SILDENAFIL
  9. OXYCODONE [Concomitant]
     Active Substance: OXYCODONE
  10. NICODERM CQ [Concomitant]
     Active Substance: NICOTINE

REACTIONS (3)
  - Hernia repair [Unknown]
  - Pericardial drainage [Unknown]
  - Incarcerated umbilical hernia [Unknown]

NARRATIVE: CASE EVENT DATE: 20190509
